FAERS Safety Report 8271648-1 (Version None)
Quarter: 2012Q2

REPORT INFORMATION
  Report Type: 
  Country: None (occurrence: None)
  Receive Date: 20120410
  Receipt Date: 20120406
  Transmission Date: 20120825
  Serious: Yes (Other)
  Sender: FDA-Public Use
  Company Number: JP-GLAXOSMITHKLINE-B0794276A

PATIENT

DRUGS (1)
  1. ZANTAC [Suspect]
     Indication: ANAESTHETIC PREMEDICATION
     Route: 042

REACTIONS (3)
  - VOMITING [None]
  - SHOCK [None]
  - RASH [None]
